FAERS Safety Report 15784421 (Version 11)
Quarter: 2020Q1

REPORT INFORMATION
  Report Type: Report from Study
  Country: GR (occurrence: GR)
  Receive Date: 20190103
  Receipt Date: 20200331
  Transmission Date: 20200409
  Serious: Yes (Hospitalization)
  Sender: FDA-Public Use
  Company Number: GR-ROCHE-2237801

PATIENT
  Age: 60 Year
  Sex: Male
  Weight: 82 kg

DRUGS (24)
  1. BLINDED ATEZOLIZUMAB [Suspect]
     Active Substance: ATEZOLIZUMAB
     Indication: METASTATIC MALIGNANT MELANOMA
     Dosage: ON 13/DEC/2018: HE RECEIVED THE MOST RECENT DOSE OF BLINDED ATEZOLIZUMAB PRIOR TO AE AND SAE ONSET (
     Route: 042
     Dates: start: 20180125
  2. MAXIDEX [Concomitant]
     Active Substance: DEXAMETHASONE
     Indication: UVEITIS
     Dosage: 1 OTHER
     Route: 065
     Dates: start: 20181003, end: 20190211
  3. FUNGUSTATIN [Concomitant]
     Active Substance: FLUCONAZOLE
     Indication: APHTHOUS ULCER
     Route: 065
     Dates: start: 20181118, end: 20181123
  4. CALCIORAL D3 [Concomitant]
     Route: 065
     Dates: start: 20191122
  5. MOXIFLOXACIN. [Concomitant]
     Active Substance: MOXIFLOXACIN
     Indication: PYREXIA
     Route: 065
     Dates: start: 20190813, end: 20190818
  6. COBIMETINIB. [Suspect]
     Active Substance: COBIMETINIB
     Indication: METASTATIC MALIGNANT MELANOMA
     Dosage: ON 22/DEC/2018, HE RECEIVED THE MOST RECENT DOSE OF COBIMETINIB PRIOR TO AE AND SAE ONSET (FIRST EPI
     Route: 048
     Dates: start: 20171221
  7. CYCLOGYL [Concomitant]
     Active Substance: CYCLOPENTOLATE HYDROCHLORIDE
     Indication: UVEITIS
     Route: 065
     Dates: start: 20181003, end: 20190211
  8. INDERALICI [Concomitant]
     Active Substance: PROPRANOLOL HYDROCHLORIDE
     Indication: HYPERTENSION
     Route: 065
     Dates: start: 20181228, end: 20190226
  9. PREDNEAU [Concomitant]
     Indication: CHOLANGITIS
     Route: 048
     Dates: start: 20191024, end: 20191028
  10. SOLU-MEDROL [Concomitant]
     Active Substance: METHYLPREDNISOLONE SODIUM SUCCINATE
     Indication: CHOLANGITIS
     Route: 042
     Dates: start: 20191029, end: 20191106
  11. BINOCRIT [Concomitant]
     Active Substance: ERYTHROPOIETIN
     Indication: ANAEMIA
     Route: 065
     Dates: start: 20191029, end: 20191029
  12. CELLCEPT [Concomitant]
     Active Substance: MYCOPHENOLATE MOFETIL\MYCOPHENOLATE MOFETIL HYDROCHLORIDE
     Indication: CHOLANGITIS
     Route: 065
     Dates: start: 20191102, end: 20200101
  13. URSOFALK [Concomitant]
     Active Substance: URSODIOL
     Indication: CHOLANGITIS
     Route: 065
     Dates: start: 20191029, end: 20191125
  14. CALCIORAL D3 [Concomitant]
     Indication: OSTEOPOROSIS PROPHYLAXIS
     Route: 065
     Dates: start: 20181228, end: 20190226
  15. BACTRIMEL [Concomitant]
     Active Substance: SULFAMETHOXAZOLE\TRIMETHOPRIM
     Route: 065
     Dates: start: 20191114, end: 20200207
  16. TAZOCIN [Concomitant]
     Active Substance: PIPERACILLIN SODIUM\TAZOBACTAM SODIUM
     Indication: PYREXIA
     Route: 065
     Dates: start: 20181118, end: 20181123
  17. FUNGUSTATIN [Concomitant]
     Active Substance: FLUCONAZOLE
     Dosage: PROPHYLAXIS FOR MUCOUS INFECTION DUE TO CORTICOSTEROIDS TREATMENT
     Route: 065
     Dates: start: 20181228, end: 20190226
  18. VEMURAFENIB. [Suspect]
     Active Substance: VEMURAFENIB
     Indication: METASTATIC MALIGNANT MELANOMA
     Dosage: ON 22/DEC/2018, HE RECEIVED THE MOST RECENT DOSE OF VEMURAFENIB PRIOR TO AE AND SAE ONSET (FIRST EPI
     Route: 048
     Dates: start: 20171221
  19. TARDYFERON [Concomitant]
     Active Substance: FERROUS SULFATE
     Indication: ANAEMIA
     Route: 065
     Dates: start: 20190917, end: 20191024
  20. LOSEC [Concomitant]
     Active Substance: OMEPRAZOLE
     Route: 065
     Dates: start: 20191114, end: 20200112
  21. FILICINE [Concomitant]
     Indication: ANAEMIA
     Route: 065
     Dates: start: 20190917, end: 20191024
  22. ZOVIRAX [Concomitant]
     Active Substance: ACYCLOVIR
     Indication: APHTHOUS ULCER
     Route: 065
     Dates: start: 20181118, end: 20181123
  23. LOSEC [Concomitant]
     Active Substance: OMEPRAZOLE
     Route: 065
     Dates: start: 20181228, end: 20190226
  24. PREDNEAU [Concomitant]
     Route: 048
     Dates: start: 20191107, end: 20191118

REACTIONS (1)
  - Colitis [Recovered/Resolved]

NARRATIVE: CASE EVENT DATE: 20181220
